FAERS Safety Report 17870703 (Version 1)
Quarter: 2020Q2

REPORT INFORMATION
  Report Type: Spontaneous
  Country: US (occurrence: US)
  Receive Date: 20200607
  Receipt Date: 20200607
  Transmission Date: 20200714
  Serious: No
  Sender: FDA-Public Use
  Company Number: None

PATIENT
  Age: 30 Year
  Sex: Female
  Weight: 58.5 kg

DRUGS (5)
  1. COMPAZINE [Suspect]
     Active Substance: PROCHLORPERAZINE MALEATE
     Indication: MIGRAINE
     Dates: start: 20200606, end: 20200606
  2. COMPAZINE [Suspect]
     Active Substance: PROCHLORPERAZINE MALEATE
     Indication: NAUSEA
     Dates: start: 20200606, end: 20200606
  3. PRENATAL VITAMINS [Concomitant]
     Active Substance: VITAMINS
  4. FIOICET [Concomitant]
  5. COMPAZINE [Suspect]
     Active Substance: PROCHLORPERAZINE MALEATE
     Indication: VOMITING
     Dates: start: 20200606, end: 20200606

REACTIONS (8)
  - Anxiety [None]
  - Feeling jittery [None]
  - Akathisia [None]
  - Vomiting [None]
  - Tremor [None]
  - Nausea [None]
  - Migraine [None]
  - Formication [None]

NARRATIVE: CASE EVENT DATE: 20200606
